FAERS Safety Report 17562051 (Version 1)
Quarter: 2020Q1

REPORT INFORMATION
  Report Type: Report from Study
  Country: ES (occurrence: ES)
  Receive Date: 20200319
  Receipt Date: 20200319
  Transmission Date: 20200409
  Serious: Yes (Hospitalization, Other)
  Sender: FDA-Public Use
  Company Number: ES-TEVA-2020-ES-1180940

PATIENT
  Age: 83 Year
  Sex: Female

DRUGS (3)
  1. QUETIAPINA STADA 25 MG COMPRIMIDOS RECUBIERTOS CON PELICULA EFG, 60 CO [Concomitant]
     Indication: VASCULAR DEMENTIA
     Dosage: 2 A DAY
     Route: 048
     Dates: start: 20191024
  2. QUETIAPINA (1136A) [Suspect]
     Active Substance: QUETIAPINE
     Indication: DEMENTIA
     Dosage: 150 MG
     Dates: start: 20191024
  3. SEROQUEL 100 MG COMPRIMIDOS RECUBIERTOS CON PELICULA , 60 COMPRIMIDOS [Concomitant]
     Indication: DEMENTIA
     Dosage: 1 A DAY
     Route: 048
     Dates: start: 20191024

REACTIONS (3)
  - Tremor [Unknown]
  - Muscle rigidity [Unknown]
  - Somnolence [Unknown]

NARRATIVE: CASE EVENT DATE: 201911
